FAERS Safety Report 10171090 (Version 6)
Quarter: 2014Q2

REPORT INFORMATION
  Report Type: Report from Study
  Country: JP (occurrence: JP)
  Receive Date: 20140514
  Receipt Date: 20140627
  Transmission Date: 20141212
  Serious: Yes (Other)
  Sender: FDA-Public Use
  Company Number: JP-JNJFOC-20131211723

PATIENT
  Age: 53 Year
  Sex: Male
  Weight: 70 kg

DRUGS (19)
  1. ITRIZOLE [Suspect]
     Indication: FUNGAL INFECTION
     Route: 048
     Dates: start: 20121017, end: 20121101
  2. TRAMCET [Suspect]
     Indication: PRODUCT USED FOR UNKNOWN INDICATION
     Dosage: 4 DF, 1 PER DAY
     Route: 048
     Dates: start: 20120915, end: 20121106
  3. MAXIPIME [Suspect]
     Indication: PNEUMONIA
     Route: 042
     Dates: start: 20121015, end: 20121026
  4. VELCADE [Concomitant]
     Indication: PLASMA CELL MYELOMA
     Dosage: 4 DF
     Route: 065
     Dates: start: 20121016, end: 20121026
  5. NAUZELIN [Concomitant]
     Dosage: 4 DF
     Route: 048
  6. TAKEPRON [Concomitant]
     Indication: PROPHYLAXIS
     Dosage: 4 DF
     Route: 048
     Dates: start: 20121016
  7. BAKTAR [Concomitant]
     Indication: PROPHYLAXIS
     Dosage: 4 DF
     Route: 048
     Dates: start: 20121017
  8. MICARDIS [Concomitant]
     Indication: HYPERTENSION
     Dosage: 4 DF
     Route: 048
  9. NORVASC [Concomitant]
     Indication: HYPERTENSION
     Dosage: 4 DF
     Route: 048
  10. ZYLORIC [Concomitant]
     Indication: HYPERTENSION
     Dosage: 4 DF
     Route: 048
  11. MYSLEE [Concomitant]
     Indication: INSOMNIA
     Route: 048
  12. DECADRON [Concomitant]
     Indication: PLASMA CELL MYELOMA
     Route: 065
     Dates: start: 20121016, end: 20121026
  13. KYTRIL [Concomitant]
     Indication: PLASMA CELL MYELOMA
     Route: 042
     Dates: start: 20121016, end: 20121026
  14. LASIX [Concomitant]
     Route: 042
     Dates: start: 20121021, end: 20121022
  15. LASIX [Concomitant]
     Route: 042
     Dates: start: 20121016, end: 20121020
  16. LASIX [Concomitant]
     Route: 042
     Dates: start: 20121023, end: 20121029
  17. ALLEGRA [Concomitant]
     Indication: DRUG ERUPTION
     Route: 048
     Dates: start: 20121026
  18. ROCEPHIN [Concomitant]
     Indication: PNEUMONIA
     Route: 042
     Dates: start: 20121031, end: 20121031
  19. FOSMICIN-S [Concomitant]
     Indication: PNEUMONIA
     Route: 042
     Dates: start: 20121101, end: 20121116

REACTIONS (5)
  - Pneumonia [Recovering/Resolving]
  - Cardiac failure [Recovering/Resolving]
  - Pyrexia [Recovering/Resolving]
  - Fungal infection [Recovering/Resolving]
  - Drug eruption [Recovered/Resolved]
